FAERS Safety Report 17667986 (Version 1)
Quarter: 2020Q2

REPORT INFORMATION
  Report Type: Spontaneous
  Country: US (occurrence: US)
  Receive Date: 20200414
  Receipt Date: 20200414
  Transmission Date: 20200713
  Serious: No
  Sender: FDA-Public Use
  Company Number: US-TARO-2019TAR00787

PATIENT
  Sex: Male

DRUGS (3)
  1. FLUOROURACIL TOPICAL CREAM USP 5% [Suspect]
     Active Substance: FLUOROURACIL
     Dosage: UNK, 2X/DAY
     Route: 061
     Dates: start: 201903, end: 201903
  2. FLUOROURACIL TOPICAL CREAM USP 5% [Suspect]
     Active Substance: FLUOROURACIL
     Indication: SKIN LESION
     Dosage: UNK, 2X/DAY
     Route: 061
     Dates: start: 201810, end: 201810
  3. FLUOROURACIL TOPICAL CREAM USP 5% [Suspect]
     Active Substance: FLUOROURACIL
     Dosage: UNK, 2X/DAY
     Route: 061
     Dates: start: 20191022

REACTIONS (7)
  - Application site erythema [Unknown]
  - Application site pain [Unknown]
  - Product administration error [Not Recovered/Not Resolved]
  - Application site scab [Not Recovered/Not Resolved]
  - Chemical burn [Unknown]
  - Drug ineffective for unapproved indication [Not Recovered/Not Resolved]
  - Skin lesion [Unknown]

NARRATIVE: CASE EVENT DATE: 2019
